FAERS Safety Report 8922573 (Version 1)
Quarter: 2012Q4

REPORT INFORMATION
  Report Type: 
  Country: US (occurrence: US)
  Receive Date: 20121123
  Receipt Date: 20121123
  Transmission Date: 20130627
  Serious: No
  Sender: FDA-Public Use
  Company Number: US-PFIZER INC-2012290803

PATIENT
  Age: 64 Year
  Sex: Female

DRUGS (1)
  1. CAMPTOSAR [Suspect]
     Indication: MALIGNANT NEOPLASM OF PANCREAS
     Dosage: 180 mg, UNK
     Dates: start: 20120820, end: 20121017

REACTIONS (1)
  - Asthenia [Unknown]
